FAERS Safety Report 24228837 (Version 1)
Quarter: 2024Q3

REPORT INFORMATION
  Report Type: Spontaneous
  Country: GB (occurrence: GB)
  Receive Date: 20240820
  Receipt Date: 20240820
  Transmission Date: 20241017
  Serious: Yes (Other)
  Sender: NOVARTIS
  Company Number: GB-002147023-NVSC2024GB166478

PATIENT
  Age: 3 Year
  Sex: Male

DRUGS (2)
  1. TRAMETINIB [Suspect]
     Active Substance: TRAMETINIB
     Indication: Ganglioglioma
     Dosage: 0.5 MG, QD
     Route: 065
     Dates: start: 202110, end: 202207
  2. TRAMETINIB [Suspect]
     Active Substance: TRAMETINIB
     Dosage: 0.37 MG (DOSE WAS DECREASED)
     Route: 065
     Dates: start: 202211

REACTIONS (4)
  - Sepsis [Unknown]
  - Nail pigmentation [Unknown]
  - Condition aggravated [Unknown]
  - Mucosal inflammation [Unknown]
